FAERS Safety Report 7414506-4 (Version None)
Quarter: 2011Q2

REPORT INFORMATION
  Report Type: 
  Country: None (occurrence: None)
  Receive Date: 20110406
  Receipt Date: 20110328
  Transmission Date: 20111010
  Serious: Yes (Other)
  Sender: FDA-Public Use
  Company Number: VER-2011-00290

PATIENT
  Age: 84 Year
  Sex: Male

DRUGS (1)
  1. CYCLOSET [Suspect]
     Indication: TYPE 2 DIABETES MELLITUS
     Dosage: 0.8 MG (0.8 MG,1 IN 1 D),ORAL
     Route: 048
     Dates: start: 20110328

REACTIONS (7)
  - LOSS OF CONSCIOUSNESS [None]
  - SOMNOLENCE [None]
  - HYPERHIDROSIS [None]
  - VOMITING [None]
  - DIZZINESS [None]
  - ORTHOSTATIC HYPOTENSION [None]
  - BLINDNESS TRANSIENT [None]
